FAERS Safety Report 24575968 (Version 1)
Quarter: 2024Q4

REPORT INFORMATION
  Report Type: Spontaneous
  Country: US (occurrence: None)
  Receive Date: 20241101
  Receipt Date: 20241101
  Transmission Date: 20250115
  Serious: Yes (Other)
  Sender: Public
  Company Number: None

PATIENT
  Age: 28 Year
  Sex: Female

DRUGS (3)
  1. XDEMVY [Suspect]
     Active Substance: LOTILANER
     Indication: Demodex blepharitis
     Dosage: INSTILL 1 DROP INTO BOTH EYES BID OPHTHALMIC
     Route: 047
     Dates: start: 20240718, end: 20240719
  2. FLUTICASONE NASAL SP (120) RX [Concomitant]
  3. REFRESH PLUS [Concomitant]
     Active Substance: CARBOXYMETHYLCELLULOSE SODIUM

REACTIONS (4)
  - Instillation site erythema [None]
  - Lacrimation increased [None]
  - Eyelids pruritus [None]
  - Swelling of eyelid [None]

NARRATIVE: CASE EVENT DATE: 20240718
